FAERS Safety Report 7517139-4 (Version None)
Quarter: 2011Q2

REPORT INFORMATION
  Report Type: 
  Country: None (occurrence: None)
  Receive Date: 20110601
  Receipt Date: 20110520
  Transmission Date: 20111010
  Serious: Yes (Other)
  Sender: FDA-Public Use
  Company Number: PHEH2008US03155

PATIENT
  Sex: Female

DRUGS (31)
  1. LEXAPRO [Concomitant]
  2. ENALAPRIL MALEATE [Concomitant]
  3. CARBOPLATIN [Concomitant]
  4. MEDROXYPROGESTERONE [Concomitant]
     Dosage: 10 MG, UNK
  5. DEXAMETHASONE [Concomitant]
     Dosage: 4 MG, UNK
  6. XELODA [Concomitant]
     Dosage: 500 MG, UNK
  7. PRILOSEC [Concomitant]
  8. ABRAXANE [Concomitant]
  9. ALEVE [Concomitant]
  10. VITAMINS [Concomitant]
  11. FOSAMAX [Concomitant]
  12. LEVAQUIN [Concomitant]
     Dosage: 500 MG, UNK
  13. PROTONIX [Concomitant]
     Dosage: 40 MG, UNK
  14. ROXICET [Concomitant]
  15. TAMOXIFEN CITRATE [Concomitant]
     Dosage: 20 MG, UNK
  16. CHLORHEXIDINE GLUCONATE [Concomitant]
  17. FASLODEX [Concomitant]
  18. KYTRIL [Concomitant]
  19. AROMASIN [Concomitant]
  20. CEPHALEXIN [Concomitant]
     Dosage: 250 MG, UNK
  21. ARIMIDEX [Concomitant]
     Dosage: 1 MG, UNK
  22. CLARITHROMYCIN [Concomitant]
  23. PERIDEX [Concomitant]
  24. DETROL [Concomitant]
  25. SKELAXIN [Concomitant]
     Dosage: 800 MG, UNK
  26. NEUPOGEN [Concomitant]
  27. AMOXICILLIN [Concomitant]
     Dosage: 500 MG, UNK
  28. ZOMETA [Suspect]
     Dosage: ONCE MONTHLY
     Dates: start: 20040201, end: 20061101
  29. DECADRON [Concomitant]
  30. NEULASTA [Concomitant]
  31. OXYCODONE HCL [Concomitant]

REACTIONS (32)
  - METASTASES TO BONE [None]
  - LUNG INFILTRATION [None]
  - AVULSION FRACTURE [None]
  - INTESTINAL POLYP [None]
  - ADENOCARCINOMA [None]
  - OSTEONECROSIS OF JAW [None]
  - SCAR [None]
  - PLEURAL EFFUSION [None]
  - HEPATIC CYST [None]
  - ABDOMINAL PAIN [None]
  - NAUSEA [None]
  - INJURY [None]
  - ANAEMIA [None]
  - FALL [None]
  - COUGH [None]
  - SPINAL OSTEOARTHRITIS [None]
  - METASTASES TO SPINE [None]
  - OSTEOPENIA [None]
  - CHOLELITHIASIS [None]
  - PAIN [None]
  - DEPRESSED MOOD [None]
  - INFECTION [None]
  - EMOTIONAL DISTRESS [None]
  - TOOTH LOSS [None]
  - MALIGNANT ASCITES [None]
  - VOMITING [None]
  - GASTROOESOPHAGEAL REFLUX DISEASE [None]
  - SPINAL COMPRESSION FRACTURE [None]
  - GINGIVAL SWELLING [None]
  - ANHEDONIA [None]
  - BACK PAIN [None]
  - GASTRITIS [None]
